FAERS Safety Report 15998201 (Version 3)
Quarter: 2019Q1

REPORT INFORMATION
  Report Type: Report from Study
  Country: IT (occurrence: IT)
  Receive Date: 20190223
  Receipt Date: 20190312
  Transmission Date: 20190418
  Serious: Yes (Hospitalization)
  Sender: FDA-Public Use
  Company Number: IT-ACCORD-108525

PATIENT
  Age: 78 Year
  Sex: Male

DRUGS (3)
  1. LEVETIRACETAM. [Suspect]
     Active Substance: LEVETIRACETAM
     Dosage: DATE AND TIME OF LAST ADMINISTRATION: 08-JUL-2018
     Route: 048
     Dates: start: 20180708
  2. TEGRETOL [Suspect]
     Active Substance: CARBAMAZEPINE
     Dosage: DATE AND TIME OF LAST ADMINISTRATION: 08-JUL-2018
     Route: 048
     Dates: start: 20180708
  3. TOPIRAMATE. [Suspect]
     Active Substance: TOPIRAMATE
     Dosage: DATE AND TIME OF LAST ADMINISTRATION: 08-JUL-2018
     Route: 048
     Dates: start: 20180708

REACTIONS (3)
  - Headache [Recovering/Resolving]
  - Nervousness [Recovering/Resolving]
  - Medication error [Unknown]
